FAERS Safety Report 9068652 (Version 1)
Quarter: 2013Q1

REPORT INFORMATION
  Report Type: Spontaneous
  Country: US (occurrence: None)
  Receive Date: 20130212
  Receipt Date: 20130212
  Transmission Date: 20140127
  Serious: Yes (Disabling)
  Sender: FDA-Public Use
  Company Number: None

PATIENT
  Age: 33 Year
  Sex: Male
  Weight: 97.52 kg

DRUGS (1)
  1. FINISTERIDE 1 OR 5MG MERCK [Suspect]
     Indication: ANDROGENETIC ALOPECIA
     Dosage: 1 TABLET PER DAY QD PO?2 YRS 9 MONTHS
     Route: 048
     Dates: start: 20080601, end: 20110301

REACTIONS (3)
  - Sexual dysfunction [None]
  - Libido decreased [None]
  - Erectile dysfunction [None]
